FAERS Safety Report 14427605 (Version 1)
Quarter: 2018Q1

REPORT INFORMATION
  Report Type: Spontaneous
  Country: ES (occurrence: ES)
  Receive Date: 20180123
  Receipt Date: 20180123
  Transmission Date: 20180509
  Serious: Yes (Hospitalization, Other)
  Sender: FDA-Public Use
  Company Number: ES-ALLERGAN-1802993US

PATIENT
  Age: 32 Year
  Sex: Female

DRUGS (3)
  1. ATOSIBAN [Suspect]
     Active Substance: ATOSIBAN
     Indication: ABORTION THREATENED
     Dosage: UNK
     Route: 042
  2. INDOMETHACIN. [Suspect]
     Active Substance: INDOMETHACIN
     Indication: ABORTION THREATENED
     Route: 054
  3. PROGESTERONE UNK [Suspect]
     Active Substance: PROGESTERONE
     Indication: ABORTION THREATENED
     Route: 067

REACTIONS (5)
  - Pre-eclampsia [Unknown]
  - Off label use [Unknown]
  - Premature labour [Unknown]
  - Arthralgia [Unknown]
  - Pregnancy [Unknown]
